FAERS Safety Report 5721282-X (Version None)
Quarter: 2008Q2

REPORT INFORMATION
  Report Type: 
  Country: None (occurrence: None)
  Receive Date: 20080429
  Receipt Date: 20080418
  Transmission Date: 20081010
  Serious: Yes (Death)
  Sender: FDA-Public Use
  Company Number: GB-BRISTOL-MYERS SQUIBB COMPANY-14066823

PATIENT
  Age: 42 Year
  Sex: Male

DRUGS (4)
  1. EFAVIRENZ [Suspect]
     Route: 048
     Dates: start: 20071114, end: 20080101
  2. ATRIPLA [Suspect]
     Dosage: EFAVIRENZ 600MG+EMTRICITABINE 200MG+ TENOFOVIR DISOPROXIL 245MG
     Route: 048
     Dates: start: 20080107
  3. EMTRIVA [Suspect]
     Route: 048
     Dates: start: 20071114, end: 20080101
  4. VIREAD [Suspect]
     Route: 048
     Dates: start: 20071114, end: 20080101

REACTIONS (2)
  - HODGKIN'S DISEASE [None]
  - NEUTROPENIC SEPSIS [None]
